FAERS Safety Report 7205476-2 (Version None)
Quarter: 2010Q4

REPORT INFORMATION
  Report Type: 
  Country: None (occurrence: None)
  Receive Date: 20101231
  Receipt Date: 20101229
  Transmission Date: 20110411
  Serious: Yes (Death)
  Sender: FDA-Public Use
  Company Number: PHHY2010IN89001

PATIENT
  Sex: Male

DRUGS (2)
  1. SANDOSTATIN LAR [Suspect]
     Dosage: 10 MG, QMO
  2. SANDOSTATIN LAR [Suspect]
     Dosage: 20 MG, QMO

REACTIONS (1)
  - DEATH [None]
